FAERS Safety Report 10432454 (Version 3)
Quarter: 2014Q4

REPORT INFORMATION
  Report Type: Spontaneous
  Country: DE (occurrence: DE)
  Receive Date: 20140905
  Receipt Date: 20141029
  Transmission Date: 20150528
  Serious: Yes (Hospitalization)
  Sender: FDA-Public Use
  Company Number: DE-JNJFOC-20140819105

PATIENT
  Age: 92 Year
  Sex: Male

DRUGS (8)
  1. ZOPICLONE [Concomitant]
     Active Substance: ZOPICLONE
     Route: 065
  2. SORTIS (ATORVASTATIN) [Concomitant]
     Active Substance: ATORVASTATIN
  3. HALDOL [Suspect]
     Active Substance: HALOPERIDOL
     Indication: AGITATION
     Route: 048
  4. ASPIRIN. [Concomitant]
     Active Substance: ASPIRIN
  5. MEDYN [Concomitant]
  6. PROSCAR [Concomitant]
     Active Substance: FINASTERIDE
  7. PANTOPRAZOLE [Concomitant]
     Active Substance: PANTOPRAZOLE SODIUM
  8. HALDOL [Suspect]
     Active Substance: HALOPERIDOL
     Indication: AGITATION
     Dosage: 3-8 DROPS FOR THE NIGHT
     Route: 048
     Dates: end: 20140926

REACTIONS (3)
  - Sexual activity increased [Recovered/Resolved]
  - Urinary tract infection [Unknown]
  - Sedation [Recovered/Resolved]
